FAERS Safety Report 24997748 (Version 3)
Quarter: 2025Q2

REPORT INFORMATION
  Report Type: Report from Study
  Country: US (occurrence: US)
  Receive Date: 20250222
  Receipt Date: 20250414
  Transmission Date: 20250717
  Serious: Yes (Other)
  Sender: ABBVIE
  Company Number: US-ABBVIE-6143638

PATIENT
  Age: 63 Year
  Sex: Female

DRUGS (1)
  1. SKYRIZI [Suspect]
     Active Substance: RISANKIZUMAB-RZAA
     Indication: Crohn^s disease
     Route: 058
     Dates: start: 20240416

REACTIONS (4)
  - Shoulder operation [Unknown]
  - Gastrointestinal disorder [Recovering/Resolving]
  - COVID-19 [Recovered/Resolved]
  - Rash vesicular [Not Recovered/Not Resolved]
